FAERS Safety Report 4556445-2 (Version None)
Quarter: 2005Q1

REPORT INFORMATION
  Report Type: 
  Country: None (occurrence: None)
  Receive Date: 20050114
  Receipt Date: 20050103
  Transmission Date: 20050727
  Serious: Yes (Death)
  Sender: FDA-Public Use
  Company Number: PERC20050003

PATIENT
  Age: 45 Year
  Sex: Male
  Weight: 81.6475 kg

DRUGS (4)
  1. OXYCODONE/ACETAMINOPHEN   UNKNOWN   UNKNOWN [Suspect]
     Indication: PAIN
     Dates: end: 20000128
  2. CARISOPRODOL [Concomitant]
  3. DIAZEPAM [Concomitant]
  4. CANNABIS [Concomitant]

REACTIONS (13)
  - ACCIDENTAL DEATH [None]
  - ARTERIAL DISORDER [None]
  - CORONARY ARTERY ATHEROSCLEROSIS [None]
  - CORONARY ARTERY STENOSIS [None]
  - DRUG SCREEN POSITIVE [None]
  - DRUG TOXICITY [None]
  - HYPERTENSIVE HEART DISEASE [None]
  - INTRACARDIAC THROMBUS [None]
  - NEPHROSCLEROSIS [None]
  - PULMONARY OEDEMA [None]
  - SCAR [None]
  - TATTOO [None]
  - VENTRICULAR HYPERTROPHY [None]
